FAERS Safety Report 14665101 (Version 1)
Quarter: 2018Q1

REPORT INFORMATION
  Report Type: Spontaneous
  Country: US (occurrence: US)
  Receive Date: 20180319
  Receipt Date: 20180319
  Transmission Date: 20180509
  Serious: No
  Sender: FDA-Public Use
  Company Number: None

PATIENT
  Age: 27 Year
  Sex: Female
  Weight: 77.4 kg

DRUGS (1)
  1. ALKA-SELTZER [Suspect]
     Active Substance: ANHYDROUS CITRIC ACID\ASPIRIN\SODIUM BICARBONATE
     Indication: INFLUENZA LIKE ILLNESS
     Dosage: ?          QUANTITY:2 TABLET(S);?
     Dates: start: 20180315, end: 20180319

REACTIONS (3)
  - Condition aggravated [None]
  - Swollen tongue [None]
  - Glossodynia [None]

NARRATIVE: CASE EVENT DATE: 20180315
